FAERS Safety Report 4748136-X (Version None)
Quarter: 2005Q3

REPORT INFORMATION
  Report Type: 
  Country: None (occurrence: None)
  Receive Date: 20050816
  Receipt Date: 20050803
  Transmission Date: 20060218
  Serious: Yes (Other)
  Sender: FDA-Public Use
  Company Number: 2005111234

PATIENT
  Age: 51 Year
  Sex: Male
  Weight: 140.6151 kg

DRUGS (2)
  1. VIAGRA [Suspect]
     Indication: ERECTILE DYSFUNCTION
     Dosage: (100 MG,) ORAL
     Route: 048
     Dates: start: 19990101
  2. VICODIN [Suspect]
     Indication: PROCEDURAL PAIN
     Dosage: (750 MG, 1 D), ORAL
     Route: 048
     Dates: start: 20050501, end: 20050601

REACTIONS (2)
  - DRUG EFFECT DECREASED [None]
  - JOINT INJURY [None]
